FAERS Safety Report 9828632 (Version 1)
Quarter: 2014Q1

REPORT INFORMATION
  Report Type: Spontaneous
  Country: US (occurrence: US)
  Receive Date: 20140117
  Receipt Date: 20140117
  Transmission Date: 20141002
  Serious: No
  Sender: FDA-Public Use
  Company Number: US-PFIZER INC-2014014842

PATIENT
  Age: 59 Year
  Sex: Female
  Weight: 94.79 kg

DRUGS (2)
  1. LYRICA [Suspect]
     Indication: PAIN IN EXTREMITY
     Dosage: 50 MG, 3X/DAY
     Route: 048
     Dates: start: 201311
  2. FLOVENT [Concomitant]
     Dosage: UNK

REACTIONS (1)
  - Muscle spasms [Unknown]
